FAERS Safety Report 9408293 (Version 1)
Quarter: 2013Q3

REPORT INFORMATION
  Report Type: Spontaneous
  Country: US (occurrence: US)
  Receive Date: 20130718
  Receipt Date: 20130718
  Transmission Date: 20140515
  Serious: Yes (Hospitalization)
  Sender: FDA-Public Use
  Company Number: US-GLAXOSMITHKLINE-A1032669A

PATIENT
  Age: 66 Year
  Sex: Female

DRUGS (7)
  1. VENTOLIN [Suspect]
     Indication: ASTHMA
     Dosage: 2PUFF AS REQUIRED
     Route: 055
  2. DULERA [Concomitant]
  3. SPIRIVA [Concomitant]
  4. VITAMIN D [Concomitant]
  5. CALCIUM [Concomitant]
  6. Z PACK [Concomitant]
  7. ANTIBIOTICS [Concomitant]

REACTIONS (2)
  - Pneumonia [Recovered/Resolved]
  - Expired drug administered [Recovered/Resolved]
